FAERS Safety Report 9235756 (Version 1)
Quarter: 2013Q2

REPORT INFORMATION
  Report Type: Spontaneous
  Country: US (occurrence: None)
  Receive Date: 20130416
  Receipt Date: 20130416
  Transmission Date: 20140414
  Serious: Yes (Disabling)
  Sender: FDA-Public Use
  Company Number: None

PATIENT
  Age: 57 Year
  Sex: Male
  Weight: 95.26 kg

DRUGS (4)
  1. NEOMYCIN AND POLYMYXIN B SULFATES [Suspect]
     Indication: EYE INFECTION
     Dosage: APPLY SMALL AMOUNT 2 A DAY OPTHALMIC
     Route: 047
     Dates: start: 20130305, end: 20130319
  2. NEOMYCIN AND POLYMYXIN B SULFATES [Suspect]
     Indication: EYE IRRITATION
     Dosage: APPLY SMALL AMOUNT 2 A DAY OPTHALMIC
     Route: 047
     Dates: start: 20130305, end: 20130319
  3. AZITHROMYCIN [Suspect]
     Indication: EYE INFECTION
     Dosage: 250 MG DAY 1-2, 1 A DAY PO
     Route: 048
     Dates: start: 20130305, end: 20130310
  4. AZITHROMYCIN [Suspect]
     Indication: EYE IRRITATION
     Dosage: 250 MG DAY 1-2, 1 A DAY PO
     Route: 048
     Dates: start: 20130305, end: 20130310

REACTIONS (1)
  - Tinnitus [None]
